FAERS Safety Report 8231844-6 (Version None)
Quarter: 2012Q1

REPORT INFORMATION
  Report Type: 
  Country: None (occurrence: None)
  Receive Date: 20120323
  Receipt Date: 20120316
  Transmission Date: 20120608
  Serious: Yes (Death)
  Sender: FDA-Public Use
  Company Number: GB-ROCHE-1002913

PATIENT
  Sex: Female
  Weight: 62.5 kg

DRUGS (7)
  1. PEGASYS [Suspect]
     Indication: HEPATITIS C
     Route: 058
     Dates: start: 20110209
  2. DIAZEPAM [Suspect]
     Indication: PRODUCT USED FOR UNKNOWN INDICATION
  3. AMITRIPTYLINE HCL [Suspect]
     Indication: PAIN
     Route: 048
  4. METHADONE HCL [Suspect]
     Indication: DRUG DEPENDENCE
     Route: 048
  5. DICLOFENAC SODIUM [Concomitant]
  6. COPEGUS [Suspect]
     Indication: HEPATITIS C
     Route: 048
     Dates: start: 20110209
  7. SALBUTAMOL INHALER [Concomitant]

REACTIONS (1)
  - TOXICITY TO VARIOUS AGENTS [None]
